FAERS Safety Report 21972510 (Version 2)
Quarter: 2024Q3

REPORT INFORMATION
  Report Type: Spontaneous
  Country: US (occurrence: US)
  Receive Date: 20230209
  Receipt Date: 20240807
  Transmission Date: 20241016
  Serious: Yes (Hospitalization, Other)
  Sender: MYLAN
  Company Number: US-MYLANLABS-2023M1013638

PATIENT
  Age: 18 Year
  Sex: Male
  Weight: 86.18 kg

DRUGS (3)
  1. ZOLOFT [Suspect]
     Active Substance: SERTRALINE HYDROCHLORIDE
     Indication: Product used for unknown indication
     Dosage: UNK
     Route: 065
  2. SERTRALINE HYDROCHLORIDE [Suspect]
     Active Substance: SERTRALINE HYDROCHLORIDE
     Indication: Depression
     Dosage: 150 MILLIGRAM, QD (THREE 50 MG TABLETS)
     Route: 048
     Dates: start: 200103, end: 200311
  3. SERTRALINE HYDROCHLORIDE [Suspect]
     Active Substance: SERTRALINE HYDROCHLORIDE
     Dosage: 150 MILLIGRAM, QD (THREE 50 MG TABLETS PER DAY)
     Route: 048
     Dates: start: 201703, end: 202403

REACTIONS (9)
  - Depression [Unknown]
  - Suicide attempt [Unknown]
  - Suicidal ideation [Unknown]
  - Condition aggravated [Unknown]
  - Panic attack [Unknown]
  - Irritability [Unknown]
  - Restlessness [Unknown]
  - Intentional product misuse [Unknown]
  - Inappropriate schedule of product discontinuation [Unknown]

NARRATIVE: CASE EVENT DATE: 20010301
